FAERS Safety Report 6603349-7 (Version None)
Quarter: 2010Q1

REPORT INFORMATION
  Report Type: 
  Country: None (occurrence: None)
  Receive Date: 20100226
  Receipt Date: 20090219
  Transmission Date: 20100710
  Serious: No
  Sender: FDA-Public Use
  Company Number: A0769536A

PATIENT
  Age: 45 Year
  Sex: Female

DRUGS (2)
  1. VALTREX [Suspect]
     Indication: GENITAL HERPES
     Route: 048
     Dates: start: 20050101
  2. WELLBUTRIN [Concomitant]

REACTIONS (1)
  - VULVOVAGINAL BURNING SENSATION [None]
